FAERS Safety Report 20568495 (Version 2)
Quarter: 2023Q2

REPORT INFORMATION
  Report Type: Report from Study
  Country: US (occurrence: US)
  Receive Date: 20220308
  Receipt Date: 20230522
  Transmission Date: 20230722
  Serious: Yes (Hospitalization)
  Sender: FDA-Public Use
  Company Number: US-PFIZER INC-202200327803

PATIENT
  Age: 7 Year
  Sex: Male
  Weight: 25.4 kg

DRUGS (4)
  1. LORLATINIB [Suspect]
     Active Substance: LORLATINIB
     Indication: Neuroblastoma
     Dosage: 110 MG, 1X/DAY
     Route: 048
     Dates: start: 20220207, end: 20220225
  2. TOPOTECAN HYDROCHLORIDE [Suspect]
     Active Substance: TOPOTECAN HYDROCHLORIDE
     Indication: Neuroblastoma
     Dosage: 0.725 MG, 1X/DAY
     Route: 042
     Dates: start: 20220207, end: 20220211
  3. PEGFILGRASTIM [Suspect]
     Active Substance: PEGFILGRASTIM
     Indication: Neuroblastoma
     Dosage: 2.5 MG, 1X/DAY
     Route: 058
     Dates: start: 20220212, end: 20220212
  4. CYTOXAN [Suspect]
     Active Substance: CYCLOPHOSPHAMIDE
     Indication: Neuroblastoma
     Dosage: 240 MG, 1X/DAY
     Route: 042
     Dates: start: 20220207, end: 20220211

REACTIONS (2)
  - Febrile neutropenia [Recovered/Resolved]
  - Pneumonia [Recovered/Resolved]

NARRATIVE: CASE EVENT DATE: 20220217
